FAERS Safety Report 5326919-5 (Version None)
Quarter: 2007Q2

REPORT INFORMATION
  Report Type: 
  Country: None (occurrence: None)
  Receive Date: 20070510
  Receipt Date: 20070312
  Transmission Date: 20071010
  Serious: Yes (Death)
  Sender: FDA-Public Use
  Company Number: A03200702437

PATIENT

DRUGS (1)
  1. AMBIEN [Suspect]
     Dosage: NI UNK - ORAL
     Route: 048

REACTIONS (2)
  - ROAD TRAFFIC ACCIDENT [None]
  - SLEEP WALKING [None]
